FAERS Safety Report 16647566 (Version 1)
Quarter: 2019Q3

REPORT INFORMATION
  Report Type: Spontaneous
  Country: US (occurrence: US)
  Receive Date: 20190729
  Receipt Date: 20190729
  Transmission Date: 20191004
  Serious: Yes (Life-Threatening, Hospitalization)
  Sender: FDA-Public Use
  Company Number: None

PATIENT
  Age: 66 Year
  Sex: Female
  Weight: 69.75 kg

DRUGS (8)
  1. LEVOTHORIXIN .05 MG [Concomitant]
  2. D3 5,000 IU [Concomitant]
  3. MULTIMINERALS CENTRUM SILVER FOR WOMEN [Concomitant]
  4. HYDROCHLOROTHIAZIDE 12.5 MG [Concomitant]
     Active Substance: HYDROCHLOROTHIAZIDE
  5. ROPINIROLE 1MG [Concomitant]
  6. DULUXATINE DR 30 MG [Concomitant]
  7. ASPIRIN 81 MG [Concomitant]
     Active Substance: ASPIRIN
  8. LISINOPRIL 10MG TABLETS [Suspect]
     Active Substance: LISINOPRIL
     Indication: BLOOD PRESSURE MEASUREMENT
     Dosage: ?          QUANTITY:1 TABLET(S);?
     Route: 048
     Dates: start: 20180221, end: 20190728

REACTIONS (2)
  - Lip swelling [None]
  - Pharyngeal swelling [None]

NARRATIVE: CASE EVENT DATE: 20190727
